FAERS Safety Report 15491421 (Version 1)
Quarter: 2018Q4

REPORT INFORMATION
  Report Type: Spontaneous
  Country: US (occurrence: US)
  Receive Date: 20181012
  Receipt Date: 20181012
  Transmission Date: 20190205
  Serious: Yes (Death, Other)
  Sender: FDA-Public Use
  Company Number: US-009507513-1810USA005120

PATIENT
  Sex: Female

DRUGS (1)
  1. FOSAMAX [Suspect]
     Active Substance: ALENDRONATE SODIUM
     Dosage: UNK
     Route: 048

REACTIONS (8)
  - Pain [Unknown]
  - Osteonecrosis [Unknown]
  - Surgery [Unknown]
  - Tooth loss [Unknown]
  - Death [Fatal]
  - Jaw fracture [Unknown]
  - Fatigue [Unknown]
  - Drug resistance [Unknown]
